FAERS Safety Report 9860827 (Version 1)
Quarter: 2014Q1

REPORT INFORMATION
  Report Type: Spontaneous
  Country: ES (occurrence: None)
  Receive Date: 20140130
  Receipt Date: 20140130
  Transmission Date: 20141002
  Serious: Yes (Hospitalization)
  Sender: FDA-Public Use
  Company Number: FK201400244

PATIENT
  Age: 54 Year
  Sex: Male

DRUGS (5)
  1. PACLITAXEL [Suspect]
     Indication: ADENOID CYSTIC CARCINOMA OF SALIVARY GLAND
     Dosage: 80 MG/M2, 1 WK
     Dates: start: 2005
  2. CETUXIMAB (CETUXIMAB) (CETUXIMAB) [Suspect]
     Indication: ADENOID CYSTIC CARCINOMA OF SALIVARY GLAND
     Dosage: 450 MG/M2, FIRST WEEK
     Dates: start: 2009
  3. CARBOPLATIN (CARBOPLATIN) [Concomitant]
  4. VINORELBINE (VINORELBINE) [Concomitant]
  5. TEGAFUR (TEGAFUR) [Concomitant]

REACTIONS (2)
  - Folliculitis [None]
  - Erythema [None]
